FAERS Safety Report 5430602-5 (Version None)
Quarter: 2007Q3

REPORT INFORMATION
  Report Type: 
  Country: None (occurrence: None)
  Receive Date: 20070828
  Receipt Date: 20070820
  Transmission Date: 20080115
  Serious: Yes (Death)
  Sender: FDA-Public Use
  Company Number: 2007-163400-NL

PATIENT

DRUGS (1)
  1. ETONOGESTREL (BATCH #: 817738/887282) [Suspect]
     Dosage: DF TRANSPLACENTAL
     Route: 064
     Dates: start: 20070101

REACTIONS (3)
  - DEATH NEONATAL [None]
  - DRUG EXPOSURE DURING PREGNANCY [None]
  - PREMATURE BABY [None]
